FAERS Safety Report 10280404 (Version 2)
Quarter: 2014Q3

REPORT INFORMATION
  Report Type: Spontaneous
  Country: GB (occurrence: GB)
  Receive Date: 20140707
  Receipt Date: 20140910
  Transmission Date: 20150326
  Serious: Yes (Other)
  Sender: FDA-Public Use
  Company Number: GB-PFIZER INC-2014184429

PATIENT
  Age: 59 Year
  Sex: Male
  Weight: 74.1 kg

DRUGS (6)
  1. CANDESARTAN CILEXETIL. [Concomitant]
     Active Substance: CANDESARTAN CILEXETIL
     Dosage: 16 MG, DAILY
     Route: 048
     Dates: start: 20120704
  2. FEXOFENADINE HYDROCHLORIDE. [Concomitant]
     Active Substance: FEXOFENADINE HYDROCHLORIDE
     Dosage: 180 MG, 2X/DAY
     Route: 048
     Dates: start: 20120704
  3. HUMALOG [Concomitant]
     Active Substance: INSULIN LISPRO
     Dosage: 100 ML, 3X/DAY
     Route: 058
     Dates: start: 20120704
  4. SIMVASTATIN. [Concomitant]
     Active Substance: SIMVASTATIN
     Dosage: 40 MG, 1X/DAY
     Route: 048
     Dates: start: 20140331
  5. CHAMPIX [Suspect]
     Active Substance: VARENICLINE TARTRATE
     Indication: SMOKING CESSATION THERAPY
     Dosage: 4 MG, 2X/DAY
     Route: 048
     Dates: start: 20140415, end: 20140605
  6. GLUCAGEN HYPOKIT [Concomitant]
     Active Substance: GLUCAGON HYDROCHLORIDE
     Dosage: 1 MG, AS NEEDED
     Route: 058
     Dates: start: 20120704

REACTIONS (3)
  - Diabetes mellitus inadequate control [Unknown]
  - Hypoglycaemia [Unknown]
  - Blood glucose increased [Recovered/Resolved]

NARRATIVE: CASE EVENT DATE: 2014
